FAERS Safety Report 11584140 (Version 1)
Quarter: 2015Q4

REPORT INFORMATION
  Report Type: Spontaneous
  Country: US (occurrence: US)
  Receive Date: 20151001
  Receipt Date: 20151001
  Transmission Date: 20160304
  Serious: Yes (Other)
  Sender: FDA-Public Use
  Company Number: US-TEVA-597012ACC

PATIENT
  Sex: Female
  Weight: 68.1 kg

DRUGS (3)
  1. CITALOPRAM [Concomitant]
     Active Substance: CITALOPRAM HYDROBROMIDE
  2. PARAGARD T 380A [Suspect]
     Active Substance: COPPER
     Indication: CONTRACEPTION
     Route: 015
     Dates: start: 20150819, end: 20150924
  3. INSULIN PUMP [Concomitant]
     Active Substance: INSULIN NOS

REACTIONS (2)
  - Device dislocation [Recovered/Resolved]
  - Device expulsion [Recovered/Resolved]
